FAERS Safety Report 22614964 (Version 1)
Quarter: 2023Q2

REPORT INFORMATION
  Report Type: Spontaneous
  Country: US (occurrence: US)
  Receive Date: 20230619
  Receipt Date: 20230619
  Transmission Date: 20230721
  Serious: No
  Sender: FDA-Public Use
  Company Number: US-Accord-305361

PATIENT
  Sex: Female

DRUGS (1)
  1. OLMESARTAN MEDOXOMIL [Suspect]
     Active Substance: OLMESARTAN MEDOXOMIL
     Indication: Hypertension
     Dosage: STRENGTH: 5MG, DOSE: 15 MG DAILY (5MG X 3 TABLETS)
     Route: 048

REACTIONS (2)
  - Chromaturia [Unknown]
  - Inflammation [Unknown]
